FAERS Safety Report 16757396 (Version 1)
Quarter: 2019Q3

REPORT INFORMATION
  Report Type: Spontaneous
  Country: US (occurrence: US)
  Receive Date: 20190829
  Receipt Date: 20190829
  Transmission Date: 20191005
  Serious: No
  Sender: FDA-Public Use
  Company Number: US-ASTRAZENECA-2019SF13127

PATIENT
  Age: 45 Year
  Sex: Female

DRUGS (2)
  1. SYMBICORT [Suspect]
     Active Substance: BUDESONIDE\FORMOTEROL FUMARATE DIHYDRATE
     Indication: ASTHMA
     Dosage: 160/4.5 MCGS 2 PUFF TWICE DAILY
     Route: 055
     Dates: start: 2001
  2. SYMBICORT [Suspect]
     Active Substance: BUDESONIDE\FORMOTEROL FUMARATE DIHYDRATE
     Indication: CHRONIC OBSTRUCTIVE PULMONARY DISEASE
     Dosage: 160/4.5 MCGS 2 PUFF TWICE DAILY
     Route: 055
     Dates: start: 2001

REACTIONS (5)
  - Product storage error [Unknown]
  - Malaise [Unknown]
  - Intentional device misuse [Unknown]
  - Device leakage [Unknown]
  - Disability [Unknown]

NARRATIVE: CASE EVENT DATE: 2016
